FAERS Safety Report 13067541 (Version 2)
Quarter: 2016Q4

REPORT INFORMATION
  Report Type: Spontaneous
  Country: IN (occurrence: IN)
  Receive Date: 20161228
  Receipt Date: 20161228
  Transmission Date: 20170207
  Serious: Yes (Other)
  Sender: FDA-Public Use
  Company Number: IN-AUROBINDO PHARMA GMBH-AUR-APL-2014-06282

PATIENT
  Age: 57 Year
  Sex: Female

DRUGS (1)
  1. METFORMIN [Suspect]
     Active Substance: METFORMIN HYDROCHLORIDE
     Indication: DIABETES MELLITUS
     Dosage: UNK
     Route: 065

REACTIONS (7)
  - Senile ankylosing vertebral hyperostosis [Unknown]
  - Joint stiffness [Unknown]
  - Periarthritis [Unknown]
  - Carpal tunnel syndrome [Unknown]
  - Myalgia [Unknown]
  - Musculoskeletal disorder [Unknown]
  - Hypovitaminosis [Unknown]
